FAERS Safety Report 24211306 (Version 1)
Quarter: 2024Q3

REPORT INFORMATION
  Report Type: Spontaneous
  Country: US (occurrence: None)
  Receive Date: 20240813
  Receipt Date: 20240813
  Transmission Date: 20241016
  Serious: Yes (Disabling)
  Sender: Public
  Company Number: None

PATIENT
  Age: 37 Year
  Sex: Female
  Weight: 72 kg

DRUGS (11)
  1. RINVOQ [Suspect]
     Active Substance: UPADACITINIB
     Indication: Crohn^s disease
     Dates: start: 20240709, end: 20240803
  2. SPIRONOLACTONE [Concomitant]
     Active Substance: SPIRONOLACTONE
  3. LAMOTRIGINE [Concomitant]
     Active Substance: LAMOTRIGINE
  4. DILTIAZEM [Concomitant]
     Active Substance: DILTIAZEM
  5. DULOXETINE [Concomitant]
     Active Substance: DULOXETINE
  6. COLESTIPOL [Concomitant]
     Active Substance: COLESTIPOL
  7. REXULTI [Concomitant]
     Active Substance: BREXPIPRAZOLE
  8. VYVANSE [Concomitant]
     Active Substance: LISDEXAMFETAMINE DIMESYLATE
  9. PRAZOSIN [Concomitant]
     Active Substance: PRAZOSIN
  10. XYWAV [Concomitant]
     Active Substance: CALCIUM OXYBATE\MAGNESIUM OXYBATE\POTASSIUM OXYBATE\SODIUM OXYBATE
  11. LILETTA [Concomitant]
     Active Substance: LEVONORGESTREL

REACTIONS (5)
  - Tachycardia [None]
  - Dyspnoea [None]
  - Chest pain [None]
  - Fatigue [None]
  - Dizziness [None]

NARRATIVE: CASE EVENT DATE: 20240716
